FAERS Safety Report 7084178-X (Version None)
Quarter: 2010Q4

REPORT INFORMATION
  Report Type: 
  Country: None (occurrence: None)
  Receive Date: 20101104
  Receipt Date: 20101026
  Transmission Date: 20110411
  Serious: Yes (Other)
  Sender: FDA-Public Use
  Company Number: ZA-JNJCH-2010024691

PATIENT
  Age: 78 Year
  Sex: Female

DRUGS (1)
  1. LISTERINE ANTISEPTIC MOUTHWASH [Suspect]
     Indication: DENTAL DISORDER PROPHYLAXIS
     Dosage: TEXT:UNKNOWN
     Route: 048
     Dates: start: 20101025, end: 20101026

REACTIONS (3)
  - APPLICATION SITE BURN [None]
  - ORAL PAIN [None]
  - OROPHARYNGEAL BLISTERING [None]
